FAERS Safety Report 22012685 (Version 1)
Quarter: 2023Q1

REPORT INFORMATION
  Report Type: Spontaneous
  Country: CA (occurrence: CA)
  Receive Date: 20230220
  Receipt Date: 20230220
  Transmission Date: 20230418
  Serious: Yes (Other)
  Sender: FDA-Public Use
  Company Number: CA-002147023-NVSC2023CA033450

PATIENT
  Age: 60 Year
  Sex: Male

DRUGS (11)
  1. HYDROXYZINE [Suspect]
     Active Substance: HYDROXYZINE HYDROCHLORIDE
     Indication: Neuropathic pruritus
     Dosage: 25 MG, TID
     Route: 065
  2. MIRTAZAPINE [Suspect]
     Active Substance: MIRTAZAPINE
     Indication: Neuropathic pruritus
     Dosage: 15 MG
     Route: 065
  3. PREGABALIN [Suspect]
     Active Substance: PREGABALIN
     Indication: Neuropathic pruritus
     Dosage: 50 MG (1 EVERY 5 DAYS)
     Route: 065
  4. VENLAFAXINE [Suspect]
     Active Substance: VENLAFAXINE HYDROCHLORIDE
     Indication: Neuropathic pruritus
     Dosage: 150 MG, QD
     Route: 065
  5. CAPSAICIN [Suspect]
     Active Substance: CAPSAICIN
     Indication: Neuropathic pruritus
     Dosage: UNK
     Route: 061
  6. CAPSAICIN [Suspect]
     Active Substance: CAPSAICIN
     Indication: Pruritus
  7. NORTRIPTYLINE [Suspect]
     Active Substance: NORTRIPTYLINE
     Indication: Neuropathic pruritus
     Dosage: 10 MG
     Route: 065
  8. CAMPHOR [Concomitant]
     Active Substance: CAMPHOR
     Indication: Neuropathic pruritus
     Dosage: UNK
     Route: 061
  9. CAMPHOR [Concomitant]
     Active Substance: CAMPHOR
     Indication: Pruritus
  10. MENTHOL [Concomitant]
     Active Substance: MENTHOL
     Indication: Neuropathic pruritus
     Dosage: UNK
     Route: 061
  11. MENTHOL [Concomitant]
     Active Substance: MENTHOL
     Indication: Pruritus

REACTIONS (4)
  - Anticholinergic syndrome [Unknown]
  - Sedation [Unknown]
  - Off label use [Unknown]
  - Drug ineffective [Unknown]
